FAERS Safety Report 25659373 (Version 1)
Quarter: 2025Q3

REPORT INFORMATION
  Report Type: Spontaneous
  Country: EU (occurrence: EU)
  Receive Date: 20250808
  Receipt Date: 20250808
  Transmission Date: 20251021
  Serious: Yes (Other)
  Sender: PFIZER
  Company Number: EU-PFIZER INC-PV202500095129

PATIENT
  Age: 79 Year
  Sex: Female

DRUGS (5)
  1. SUNITINIB MALATE [Suspect]
     Active Substance: SUNITINIB MALATE
     Indication: Gastrointestinal stromal tumour
  2. ESOMEPRAZOLE [Concomitant]
     Active Substance: ESOMEPRAZOLE
     Indication: Gastric pH increased
     Dosage: 20 MG, 1X/DAY
  3. FERROUS SULFATE [Concomitant]
     Active Substance: FERROUS SULFATE
     Indication: Anaemia
     Dosage: 80 MG, 1X/DAY
  4. LIV 52 HB [Concomitant]
     Indication: Hepatic function abnormal
     Dosage: UNK, 4X/DAY
  5. ACETAMINOPHEN\TRAMADOL [Concomitant]
     Active Substance: ACETAMINOPHEN\TRAMADOL
     Indication: Pain management

REACTIONS (8)
  - Neutropenia [Unknown]
  - Cataract [Unknown]
  - Leukopenia [Unknown]
  - Arterial stenosis [Unknown]
  - Hypertension [Unknown]
  - Nail bed disorder [Unknown]
  - Anaemia [Unknown]
  - Alopecia [Unknown]
